FAERS Safety Report 7213315-9 (Version None)
Quarter: 2010Q4

REPORT INFORMATION
  Report Type: 
  Country: None (occurrence: None)
  Receive Date: 20101126
  Receipt Date: 20100713
  Transmission Date: 20110411
  Serious: Yes (Disabling)
  Sender: FDA-Public Use
  Company Number: WAES 0704USA05716

PATIENT
  Age: 50 Year
  Sex: Female
  Weight: 71.6683 kg

DRUGS (7)
  1. FOSAMAX [Suspect]
     Indication: OSTEOPENIA
     Dosage: 70 MG/WKY/PO
     Route: 048
     Dates: start: 19980101, end: 20061023
  2. FOSAMAX [Suspect]
     Indication: OSTEOPOROSIS
     Dosage: 70 MG/WKY/PO
     Route: 048
     Dates: start: 19980101, end: 20061023
  3. LEVOXYL [Concomitant]
  4. RANITIDINE-BC [Concomitant]
  5. THERAPY UNSPECIFIED [Concomitant]
  6. CALCIUM [Concomitant]
  7. VITAMIN D [Concomitant]

REACTIONS (17)
  - ADVERSE DRUG REACTION [None]
  - ANXIETY [None]
  - BACK PAIN [None]
  - BONE DENSITY DECREASED [None]
  - COUGH [None]
  - DENTAL CARIES [None]
  - DEPRESSION [None]
  - FASCIITIS [None]
  - FRACTURE [None]
  - INFECTION [None]
  - NECK PAIN [None]
  - OSTEONECROSIS [None]
  - OSTEOPOROSIS [None]
  - PALPITATIONS [None]
  - SINUSITIS [None]
  - TEMPOROMANDIBULAR JOINT SYNDROME [None]
  - TRISMUS [None]
